FAERS Safety Report 12797451 (Version 1)
Quarter: 2016Q3

REPORT INFORMATION
  Report Type: Spontaneous
  Country: US (occurrence: US)
  Receive Date: 20160929
  Receipt Date: 20160929
  Transmission Date: 20161109
  Serious: Yes (Hospitalization)
  Sender: FDA-Public Use
  Company Number: None

PATIENT
  Age: 62 Year
  Sex: Female

DRUGS (1)
  1. MYCOPHENOLATE MOF CAP 250MG [Suspect]
     Active Substance: MYCOPHENOLATE MOFETIL
     Indication: AMNESTIC DISORDER

REACTIONS (5)
  - Blood creatinine increased [None]
  - Tremor [None]
  - Asthenia [None]
  - Pain in extremity [None]
  - Blood phosphorus increased [None]

NARRATIVE: CASE EVENT DATE: 20160929
